FAERS Safety Report 7550751-5 (Version None)
Quarter: 2011Q2

REPORT INFORMATION
  Report Type: 
  Country: None (occurrence: None)
  Receive Date: 20110616
  Receipt Date: 20110614
  Transmission Date: 20111010
  Serious: No
  Sender: FDA-Public Use
  Company Number: US-TEVA-286351USA

PATIENT
  Sex: Female

DRUGS (2)
  1. PREDNISONE [Concomitant]
     Route: 048
  2. COPAXONE [Suspect]
     Indication: MULTIPLE SCLEROSIS
     Route: 058
     Dates: start: 19980101

REACTIONS (1)
  - IMMEDIATE POST-INJECTION REACTION [None]
